FAERS Safety Report 23304216 (Version 1)
Quarter: 2023Q4

REPORT INFORMATION
  Report Type: Spontaneous
  Country: US (occurrence: US)
  Receive Date: 20231218
  Receipt Date: 20231218
  Transmission Date: 20240109
  Serious: No
  Sender: FDA-Public Use
  Company Number: US-SA-SAC20231213000483

PATIENT
  Sex: Female
  Weight: 61 kg

DRUGS (6)
  1. DUPIXENT [Suspect]
     Active Substance: DUPILUMAB
     Indication: Dermatitis atopic
     Dosage: 300 MG QOW
     Route: 058
  2. RESTASIS [Concomitant]
     Active Substance: CYCLOSPORINE
     Dosage: UNK
  3. KETOCONAZOLE [Concomitant]
     Active Substance: KETOCONAZOLE
     Dosage: UNK
  4. HYDROCORTISONE [Concomitant]
     Active Substance: HYDROCORTISONE
     Dosage: UNK
  5. DUTASTERIDE [Concomitant]
     Active Substance: DUTASTERIDE
     Dosage: UNK
  6. FENOFIBRATE [Concomitant]
     Active Substance: FENOFIBRATE
     Dosage: UNK

REACTIONS (1)
  - COVID-19 [Not Recovered/Not Resolved]
